FAERS Safety Report 16164616 (Version 1)
Quarter: 2019Q2

REPORT INFORMATION
  Report Type: Spontaneous
  Country: CN (occurrence: CN)
  Receive Date: 20190405
  Receipt Date: 20190405
  Transmission Date: 20190711
  Serious: Yes (Hospitalization, Other)
  Sender: FDA-Public Use
  Company Number: CN-GLAXOSMITHKLINE-CN2019GSK059405

PATIENT
  Age: 41 Year
  Sex: Male

DRUGS (3)
  1. TENOFOVIR DISOPROXIL FUMARATE. [Suspect]
     Active Substance: TENOFOVIR DISOPROXIL FUMARATE
     Indication: HEPATITIS B
     Dosage: UNK
     Route: 048
     Dates: start: 2017
  2. LAMIVUDINE. [Suspect]
     Active Substance: LAMIVUDINE
     Indication: HEPATITIS B
     Dosage: UNK
     Route: 048
  3. ENTECAVIR. [Suspect]
     Active Substance: ENTECAVIR
     Indication: HEPATITIS B
     Dosage: UNK
     Route: 048

REACTIONS (19)
  - Drug resistance [Recovered/Resolved]
  - Feeling hot [Unknown]
  - Pain in extremity [Unknown]
  - Hepatitis B surface antigen negative [Unknown]
  - Heart rate increased [Unknown]
  - Fatigue [Unknown]
  - Hepatitis B antibody positive [Unknown]
  - Muscular weakness [Unknown]
  - Disease recurrence [Recovered/Resolved]
  - Chromaturia [Unknown]
  - Decreased appetite [Unknown]
  - Pain [Unknown]
  - Acute hepatitis B [Recovered/Resolved]
  - Hepatitis C antibody positive [Unknown]
  - Perihepatic discomfort [Unknown]
  - Diarrhoea [Unknown]
  - Hyperhidrosis [Unknown]
  - Hepatitis B surface antigen positive [Unknown]
  - Hepatitis B e antigen negative [Unknown]

NARRATIVE: CASE EVENT DATE: 2006
